FAERS Safety Report 4770875-5 (Version None)
Quarter: 2005Q3

REPORT INFORMATION
  Report Type: 
  Country: None (occurrence: None)
  Receive Date: 20050914
  Receipt Date: 20050831
  Transmission Date: 20060218
  Serious: Yes (Death, Hospitalization)
  Sender: FDA-Public Use
  Company Number: S05-FRA-01403-01

PATIENT
  Age: 78 Year
  Sex: Male

DRUGS (9)
  1. MEMANTINE HCL [Suspect]
     Indication: ABNORMAL BEHAVIOUR
     Dosage: 20 MG QD PO
     Route: 048
     Dates: start: 20050211, end: 20050217
  2. MEMANTINE HCL [Suspect]
     Indication: DEPRESSION
     Dosage: 20 MG QD PO
     Route: 048
     Dates: start: 20050211, end: 20050217
  3. DEPAKENE [Suspect]
     Dates: start: 20050223, end: 20050228
  4. DEPAKENE [Suspect]
     Dosage: 1 G QD PO
     Route: 048
     Dates: start: 20041101, end: 20050223
  5. VERAPAMIL [Suspect]
     Dosage: 240 MG QD PO
     Route: 048
     Dates: end: 20050223
  6. ATHYMIL (MIANSERIN HYDROCHLORIDE) [Suspect]
     Dosage: 30 MG QD PO
     Route: 048
     Dates: start: 20050111, end: 20050222
  7. PLAVIX [Suspect]
     Dosage: 1 QD PO
     Route: 048
     Dates: end: 20050222
  8. CLOZAPINE [Suspect]
     Dosage: 50 MG QD PO
     Route: 048
     Dates: start: 20041115, end: 20050217
  9. AUGMENTIN [Concomitant]

REACTIONS (4)
  - BLOOD IRON DECREASED [None]
  - INFLAMMATION [None]
  - NORMOCHROMIC NORMOCYTIC ANAEMIA [None]
  - SERUM FERRITIN INCREASED [None]
